FAERS Safety Report 9863525 (Version 2)
Quarter: 2014Q1

REPORT INFORMATION
  Report Type: Spontaneous
  Country: US (occurrence: US)
  Receive Date: 20140203
  Receipt Date: 20140324
  Transmission Date: 20141002
  Serious: Yes (Other)
  Sender: FDA-Public Use
  Company Number: US-PFIZER INC-2014028942

PATIENT
  Age: 34 Year
  Sex: Female
  Weight: 58.96 kg

DRUGS (1)
  1. LIPITOR [Suspect]
     Dosage: HUSBAND TAKING
     Route: 050

REACTIONS (2)
  - Exposure via partner [Unknown]
  - Abortion spontaneous [Unknown]
